FAERS Safety Report 9705243 (Version 1)
Quarter: 2013Q4

REPORT INFORMATION
  Report Type: Report from Study
  Country: US (occurrence: US)
  Receive Date: 20131122
  Receipt Date: 20131122
  Transmission Date: 20140711
  Serious: Yes (Hospitalization)
  Sender: FDA-Public Use
  Company Number: US-ACTELION-A-US2013-91293

PATIENT
  Age: 59 Year
  Sex: Female

DRUGS (3)
  1. VELETRI [Suspect]
     Indication: COR PULMONALE CHRONIC
     Dosage: 19.25 NG/KG, PER MIN
     Route: 042
     Dates: start: 20121018
  2. SILDENAFIL [Concomitant]
  3. COUMADIN [Concomitant]

REACTIONS (4)
  - Dehydration [Unknown]
  - Palpitations [Unknown]
  - Dizziness [Unknown]
  - Diarrhoea [Unknown]
